FAERS Safety Report 7683333-5 (Version None)
Quarter: 2011Q3

REPORT INFORMATION
  Report Type: 
  Country: None (occurrence: None)
  Receive Date: 20110815
  Receipt Date: 20110805
  Transmission Date: 20111222
  Serious: Yes (Other)
  Sender: FDA-Public Use
  Company Number: US-ASTRAZENECA-2011SE46937

PATIENT
  Age: 71 Year
  Sex: Female

DRUGS (8)
  1. SERTRALINE HYDROCHLORIDE [Concomitant]
     Route: 048
  2. CALCIUM CARBONATE [Concomitant]
     Route: 048
  3. LIPITOR [Concomitant]
     Route: 048
  4. CALCITRIOL [Concomitant]
     Route: 048
  5. VANDETANIB [Suspect]
     Indication: THYROID CANCER
     Route: 048
     Dates: start: 20110726
  6. ACETAMINOPHEN [Concomitant]
     Route: 048
  7. LAMOTRIGINE [Concomitant]
     Route: 048
  8. ASPIRIN [Concomitant]
     Route: 048

REACTIONS (2)
  - MUSCULOSKELETAL PAIN [None]
  - HAEMOPTYSIS [None]
